FAERS Safety Report 6614556-1 (Version None)
Quarter: 2010Q1

REPORT INFORMATION
  Report Type: 
  Country: None (occurrence: None)
  Receive Date: 20100304
  Receipt Date: 20100304
  Transmission Date: 20100710
  Serious: Yes (Hospitalization)
  Sender: FDA-Public Use
  Company Number: None

PATIENT
  Sex: Male
  Weight: 70.5 kg

DRUGS (2)
  1. CISPLATIN [Suspect]
     Indication: HEAD AND NECK CANCER
     Dosage: 100 MG/M2 D1 AND D22 IV
     Route: 042
  2. RAD0001 [Suspect]
     Dosage: 2.5 MG/DAILY D1-D28 PO
     Route: 048

REACTIONS (6)
  - BLOOD CULTURE POSITIVE [None]
  - COLITIS [None]
  - LABORATORY TEST INTERFERENCE [None]
  - NAUSEA [None]
  - STAPHYLOCOCCAL INFECTION [None]
  - VOMITING [None]
